FAERS Safety Report 17159096 (Version 1)
Quarter: 2019Q4

REPORT INFORMATION
  Report Type: Spontaneous
  Country: US (occurrence: US)
  Receive Date: 20191214
  Receipt Date: 20191214
  Transmission Date: 20200122
  Serious: Yes (Hospitalization, Disabling, Other)
  Sender: FDA-Public Use
  Company Number: None

PATIENT
  Age: 23 Year
  Sex: Female
  Weight: 83.25 kg

DRUGS (14)
  1. OMEPRAZOLE. [Concomitant]
     Active Substance: OMEPRAZOLE
  2. IBUPROFEN. [Concomitant]
     Active Substance: IBUPROFEN
  3. SENNA [Concomitant]
     Active Substance: SENNA LEAF\SENNOSIDES\SENNOSIDES A AND B
  4. SUBOXONE [Concomitant]
     Active Substance: BUPRENORPHINE HYDROCHLORIDE\NALOXONE HYDROCHLORIDE
  5. MELATONIN [Concomitant]
     Active Substance: MELATONIN
  6. CLONIDINE. [Concomitant]
     Active Substance: CLONIDINE
  7. STOOL SOFTENER (DOCUSATE) [Concomitant]
     Active Substance: DOCUSATE
  8. LAMICTAL [Concomitant]
     Active Substance: LAMOTRIGINE
  9. TOPIRIMATE [Concomitant]
     Active Substance: TOPIRAMATE
  10. VITAMIN D3 [Concomitant]
     Active Substance: CHOLECALCIFEROL
  11. TRAZODONE [Concomitant]
     Active Substance: TRAZODONE HYDROCHLORIDE
  12. KRATOM [Suspect]
     Active Substance: HERBALS\MITRAGYNINE
     Indication: PRODUCT USED FOR UNKNOWN INDICATION
     Route: 048
     Dates: end: 20191115
  13. CLARITIN [Concomitant]
     Active Substance: LORATADINE
  14. SEROQUEL [Concomitant]
     Active Substance: QUETIAPINE FUMARATE

REACTIONS (13)
  - Condition aggravated [None]
  - Aggression [None]
  - Delusion [None]
  - Bipolar I disorder [None]
  - Homicidal ideation [None]
  - Emotional distress [None]
  - Bone pain [None]
  - Drug dependence [None]
  - Crying [None]
  - Mania [None]
  - Anger [None]
  - Anxiety disorder [None]
  - Product complaint [None]

NARRATIVE: CASE EVENT DATE: 20191115
